FAERS Safety Report 13894832 (Version 1)
Quarter: 2017Q3

REPORT INFORMATION
  Report Type: Spontaneous
  Country: US (occurrence: US)
  Receive Date: 20170817
  Receipt Date: 20170817
  Transmission Date: 20171127
  Serious: Yes (Disabling)
  Sender: FDA-Public Use
  Company Number: None

PATIENT
  Sex: Female

DRUGS (7)
  1. PROGESTERONE. [Concomitant]
     Active Substance: PROGESTERONE
  2. B12 AND B COMPLEX [Concomitant]
  3. MAGNESIUM [Concomitant]
     Active Substance: MAGNESIUM
  4. SERTRALINE [Concomitant]
     Active Substance: SERTRALINE HYDROCHLORIDE
  5. ESTRADIOL TRANSDERMAL SYSTEM [Concomitant]
     Active Substance: ESTRADIOL
  6. CLONAZAPAM [Concomitant]
     Active Substance: CLONAZEPAM
  7. CIPROFLOXACIN. [Suspect]
     Active Substance: CIPROFLOXACIN
     Indication: URINARY TRACT INFECTION
     Dosage: ?          QUANTITY:20 TABLET(S);  TWICE A DAY ORAL?
     Route: 048
     Dates: start: 20060823, end: 20060901

REACTIONS (12)
  - Pain [None]
  - Toxicity to various agents [None]
  - Sensory disturbance [None]
  - Tinnitus [None]
  - Anxiety [None]
  - Small fibre neuropathy [None]
  - Hypoaesthesia [None]
  - Retinal detachment [None]
  - Paraesthesia [None]
  - Autonomic neuropathy [None]
  - Hyperacusis [None]
  - Impaired work ability [None]

NARRATIVE: CASE EVENT DATE: 20060829
